FAERS Safety Report 21448804 (Version 2)
Quarter: 2022Q4

REPORT INFORMATION
  Report Type: Report from Study
  Country: US (occurrence: None)
  Receive Date: 20221013
  Receipt Date: 20221104
  Transmission Date: 20230112
  Serious: Yes (Other)
  Sender: FDA-Public Use
  Company Number: US-Merck Healthcare KGaA-9168511

PATIENT
  Age: 52 Year
  Sex: Female

DRUGS (2)
  1. REBIF [Suspect]
     Active Substance: INTERFERON BETA-1A
     Indication: Multiple sclerosis
     Dosage: PREVIOUSLY REBIF PREFILLED SYRINGE
     Route: 058
     Dates: start: 20170210
  2. REBIF [Suspect]
     Active Substance: INTERFERON BETA-1A
     Dosage: TWO INJECTIONS PER WEEK FOR A MONTH.
     Route: 058

REACTIONS (22)
  - Open globe injury [Unknown]
  - Ocular procedural complication [Unknown]
  - Multiple sclerosis relapse [Recovering/Resolving]
  - Cataract [Recovering/Resolving]
  - Corneal perforation [Unknown]
  - Retinal injury [Not Recovered/Not Resolved]
  - Blood thyroid stimulating hormone decreased [Unknown]
  - Thyroid hormones decreased [Unknown]
  - Influenza like illness [Unknown]
  - Injection site induration [Unknown]
  - Nausea [Unknown]
  - Malaise [Unknown]
  - Asthenia [Unknown]
  - Head injury [Unknown]
  - Concussion [Unknown]
  - Visual impairment [Recovered/Resolved]
  - Palpitations [Unknown]
  - Kidney infection [Unknown]
  - Pupillary disorder [Unknown]
  - Thyroid hormones increased [Unknown]
  - Headache [Recovered/Resolved]
  - Patient-device incompatibility [Unknown]

NARRATIVE: CASE EVENT DATE: 20210501
